FAERS Safety Report 9062129 (Version 1)
Quarter: 2013Q1

REPORT INFORMATION
  Report Type: Report from Study
  Country: AT (occurrence: AT)
  Receive Date: 20130206
  Receipt Date: 20130206
  Transmission Date: 20140127
  Serious: Yes (Other)
  Sender: FDA-Public Use
  Company Number: AT-ROCHE-1184438

PATIENT
  Sex: 0

DRUGS (6)
  1. TRASTUZUMAB [Suspect]
     Indication: BREAST CANCER METASTATIC
     Dosage: LOADING DOSE
     Route: 065
  2. TRASTUZUMAB [Suspect]
     Dosage: MAINTAINENCE DOSE
     Route: 065
  3. CAPECITABINE [Suspect]
     Indication: BREAST CANCER METASTATIC
     Route: 065
  4. VINORELBINE [Suspect]
     Indication: BREAST CANCER METASTATIC
     Route: 065
  5. DOCETAXEL [Suspect]
     Indication: BREAST CANCER METASTATIC
     Route: 065
  6. GEMCITABINE [Suspect]
     Indication: BREAST CANCER METASTATIC
     Route: 065

REACTIONS (10)
  - Neutropenia [Unknown]
  - Ejection fraction decreased [Recovered/Resolved]
  - Nausea [Unknown]
  - Vomiting [Unknown]
  - Thrombocytopenia [Unknown]
  - Anaemia [Unknown]
  - Stomatitis [Unknown]
  - Palmar-plantar erythrodysaesthesia syndrome [Unknown]
  - Diarrhoea [Unknown]
  - Polyneuropathy [Unknown]
